FAERS Safety Report 15838559 (Version 1)
Quarter: 2019Q1

REPORT INFORMATION
  Report Type: Report from Study
  Country: None (occurrence: US)
  Receive Date: 20190117
  Receipt Date: 20190117
  Transmission Date: 20190417
  Serious: Yes (Death)
  Sender: FDA-Public Use
  Company Number: US-ABBVIE-19K-163-2628898-00

PATIENT
  Age: 55 Year
  Sex: Male

DRUGS (2)
  1. VENCLEXTA [Suspect]
     Active Substance: VENETOCLAX
     Indication: HODGKIN^S DISEASE LYMPHOCYTE DEPLETION TYPE STAGE UNSPECIFIED
     Dosage: FOUR TABLETS WITH A MEAL TO BE STARTED ONE MONTH AFTER STARTING IBRUTINIB.
     Route: 048
     Dates: start: 20180807
  2. IBRUTINIB [Concomitant]
     Active Substance: IBRUTINIB
     Indication: PRODUCT USED FOR UNKNOWN INDICATION

REACTIONS (1)
  - Death [Fatal]

NARRATIVE: CASE EVENT DATE: 20190102
